FAERS Safety Report 5838809-X (Version None)
Quarter: 2008Q3

REPORT INFORMATION
  Report Type: 
  Country: None (occurrence: None)
  Receive Date: 20080808
  Receipt Date: 20080728
  Transmission Date: 20090109
  Serious: Yes (Hospitalization, Other)
  Sender: FDA-Public Use
  Company Number: US-ELI_LILLY_AND_COMPANY-US200807005513

PATIENT
  Sex: Male

DRUGS (1)
  1. PROZAC [Suspect]

REACTIONS (5)
  - AMNESIA [None]
  - BALANCE DISORDER [None]
  - ISCHAEMIA [None]
  - NERVOUS SYSTEM DISORDER [None]
  - SURGERY [None]
